FAERS Safety Report 19959629 (Version 3)
Quarter: 2022Q2

REPORT INFORMATION
  Report Type: Report from Study
  Country: DE (occurrence: DE)
  Receive Date: 20211015
  Receipt Date: 20220506
  Transmission Date: 20220720
  Serious: Yes (Death, Life-Threatening, Hospitalization, Other)
  Sender: FDA-Public Use
  Company Number: DE-BAXTER-2021BAX017458

PATIENT
  Age: 67 Year
  Sex: Male
  Weight: 120 kg

DRUGS (16)
  1. PIOGLITAZONE [Suspect]
     Active Substance: PIOGLITAZONE
     Indication: Metastatic malignant melanoma
     Dosage: 60 MILLIGRAM
     Route: 048
     Dates: start: 20141104, end: 20141215
  2. PIOGLITAZONE [Suspect]
     Active Substance: PIOGLITAZONE
     Dosage: 60 MILLIGRAM
     Route: 048
     Dates: start: 20141104, end: 20141130
  3. ETORICOXIB [Suspect]
     Active Substance: ETORICOXIB
     Indication: Metastatic malignant melanoma
     Dosage: 60 MILLIGRAM
     Route: 048
     Dates: start: 20141104, end: 20141220
  4. ETORICOXIB [Suspect]
     Active Substance: ETORICOXIB
     Dosage: 60 MILLIGRAM
     Route: 048
     Dates: start: 20141104, end: 20141215
  5. ETORICOXIB [Suspect]
     Active Substance: ETORICOXIB
     Dosage: 60 MILLIGRAM
     Route: 048
     Dates: start: 20141104, end: 20141130
  6. TEMSIROLIMUS [Suspect]
     Active Substance: TEMSIROLIMUS
     Indication: Metastatic malignant melanoma
     Dosage: 25 MILLIGRAM
     Route: 042
     Dates: start: 20141104, end: 20141125
  7. TROFOSFAMIDE [Suspect]
     Active Substance: TROFOSFAMIDE
     Indication: Metastatic malignant melanoma
     Dosage: 150 MILLIGRAM
     Route: 048
     Dates: start: 20141104, end: 20141223
  8. TROFOSFAMIDE [Suspect]
     Active Substance: TROFOSFAMIDE
     Dosage: 150 MILLIGRAM
     Route: 048
     Dates: start: 20141104, end: 20141230
  9. TROFOSFAMIDE [Suspect]
     Active Substance: TROFOSFAMIDE
     Dosage: 150 MILLIGRAM
     Route: 048
     Dates: start: 20141104, end: 20141222
  10. TROFOSFAMIDE [Suspect]
     Active Substance: TROFOSFAMIDE
     Dosage: 100 MILLIGRAM
     Route: 048
     Dates: start: 20141216, end: 20141216
  11. TROFOSFAMIDE [Suspect]
     Active Substance: TROFOSFAMIDE
     Indication: Product used for unknown indication
     Dosage: 50 MICROGRAM, STOPPED AFTER MORNING DOSE
     Route: 065
     Dates: start: 20141223
  12. DACARBAZINE [Suspect]
     Active Substance: DACARBAZINE
     Indication: Metastatic malignant melanoma
     Dosage: UNK
     Route: 042
  13. IBUPROFEN [Concomitant]
     Active Substance: IBUPROFEN
     Indication: Pain
     Dosage: 1800 MILLIGRAM, QD
     Dates: start: 20141210, end: 20141218
  14. ARIXTRA [Concomitant]
     Active Substance: FONDAPARINUX SODIUM
     Indication: Prophylaxis
     Dosage: 2.5 MILLIGRAM, QD
     Route: 058
     Dates: start: 20141205, end: 20141215
  15. ENOXAPARIN SODIUM [Concomitant]
     Active Substance: ENOXAPARIN SODIUM
     Indication: Prophylaxis
     Dosage: 0.4 MILLILITER, QD
     Route: 058
     Dates: start: 20141216
  16. CERTOPARIN SODIUM [Concomitant]
     Active Substance: CERTOPARIN SODIUM
     Indication: Prophylaxis
     Dosage: UNK, QD, UNIT DOSE: 300 I.E
     Route: 058
     Dates: start: 20141130, end: 20141204

REACTIONS (2)
  - Cerebral haemorrhage [Fatal]
  - Erysipelas [Recovered/Resolved]

NARRATIVE: CASE EVENT DATE: 20141130
